FAERS Safety Report 7877680-1 (Version None)
Quarter: 2011Q4

REPORT INFORMATION
  Report Type: 
  Country: None (occurrence: None)
  Receive Date: 20111031
  Receipt Date: 20111031
  Transmission Date: 20120403
  Serious: Yes (Life-Threatening, Other)
  Sender: FDA-Public Use
  Company Number: None

PATIENT
  Age: 63 Year
  Sex: Female

DRUGS (1)
  1. ENBREL [Suspect]
     Indication: RHEUMATOID ARTHRITIS
     Dosage: 50 MG
     Route: 058
     Dates: start: 20040901, end: 20110925

REACTIONS (18)
  - POLLAKIURIA [None]
  - DRY EYE [None]
  - PNEUMONIA [None]
  - INCONTINENCE [None]
  - PSORIASIS [None]
  - MUSCLE SPASMS [None]
  - DRUG INTOLERANCE [None]
  - OEDEMA [None]
  - FULL BLOOD COUNT ABNORMAL [None]
  - MALAISE [None]
  - VISUAL IMPAIRMENT [None]
  - NAIL DISORDER [None]
  - TOOTH DISORDER [None]
  - HEADACHE [None]
  - RHINORRHOEA [None]
  - MENTAL STATUS CHANGES [None]
  - SUBCUTANEOUS NODULE [None]
  - MUSCLE DISORDER [None]
